FAERS Safety Report 7893068-1 (Version None)
Quarter: 2011Q4

REPORT INFORMATION
  Report Type: 
  Country: None (occurrence: None)
  Receive Date: 20111104
  Receipt Date: 20111102
  Transmission Date: 20120403
  Serious: Yes (Other)
  Sender: FDA-Public Use
  Company Number: US-PFIZER INC-2011268883

PATIENT
  Sex: Female
  Weight: 102 kg

DRUGS (19)
  1. CIMETIDINE [Concomitant]
     Dosage: 400 MG, DAILY
     Route: 048
  2. LISINOPRIL [Concomitant]
     Indication: BLOOD PRESSURE ABNORMAL
     Dosage: 40 MG, DAILY
  3. NIASPAN [Concomitant]
     Dosage: 500 MG, 2X/DAY
  4. LEVOTHYROXINE [Concomitant]
     Indication: THYROID DISORDER
     Dosage: 137 UG, DAILY
  5. AMLODIPINE [Concomitant]
     Dosage: 10 MG, DAILY
     Route: 048
  6. DIPHENHYDRAMINE [Concomitant]
     Dosage: 50 MG, AS NEEDED
     Route: 048
  7. MULTI-VITAMINS [Concomitant]
     Dosage: UNK
  8. ACETYLSALICYLIC ACID [Concomitant]
     Dosage: 81 MG, DAILY
  9. IBUPROFEN (ADVIL) [Concomitant]
     Dosage: UNK
  10. EFFEXOR [Suspect]
     Indication: DEPRESSION
     Dosage: 150 MG TWO TABLETS AND 37.5 MG TABLET DAILY
     Route: 048
     Dates: start: 20060101
  11. WARFARIN [Concomitant]
     Indication: ANTICOAGULANT THERAPY
     Dosage: 5 MG, UNK
  12. NITROGLYCERIN [Concomitant]
     Dosage: 0.4 MG, AS NEEDED
  13. TRAZODONE [Concomitant]
     Indication: SLEEP DISORDER
     Dosage: 100 MG, DAILY
  14. SIMVASTATIN [Concomitant]
     Dosage: 80 MG, DAILY
  15. VITAMIN B-12 [Concomitant]
     Dosage: 5 MG, DAILY
  16. CYCLOBENZAPRINE [Concomitant]
     Indication: FIBROMYALGIA
     Dosage: 10 MG, AS NEEDED
  17. METOPROLOL [Concomitant]
     Indication: ATRIAL FIBRILLATION
     Dosage: 100 MG, 2X/DAY
  18. PROCHLORPERAZINE [Concomitant]
     Indication: VOMITING
     Dosage: 25 MG, AS NEEDED
  19. PERIDEX [Concomitant]
     Indication: TOOTH DISORDER
     Dosage: UNK

REACTIONS (4)
  - DRUG INEFFECTIVE [None]
  - THYROID DISORDER [None]
  - PORPHYRIA [None]
  - SEASONAL AFFECTIVE DISORDER [None]
